FAERS Safety Report 19665063 (Version 2)
Quarter: 2021Q3

REPORT INFORMATION
  Report Type: Spontaneous
  Country: US (occurrence: US)
  Receive Date: 20210806
  Receipt Date: 20210816
  Transmission Date: 20211014
  Serious: No
  Sender: FDA-Public Use
  Company Number: US-STRONGBRIDGE BIOPHARMA-2021-STR-000244

PATIENT
  Age: 58 Year
  Sex: Female

DRUGS (6)
  1. KEVEYIS [Suspect]
     Active Substance: DICHLORPHENAMIDE
     Dosage: 25 MG
     Route: 048
     Dates: start: 20210701
  2. KEVEYIS [Suspect]
     Active Substance: DICHLORPHENAMIDE
     Dosage: 12.5 MG, QOD
     Route: 048
  3. KEVEYIS [Suspect]
     Active Substance: DICHLORPHENAMIDE
     Indication: FAMILIAL PERIODIC PARALYSIS
     Dosage: UNK
     Route: 048
     Dates: start: 20210629
  4. KEVEYIS [Suspect]
     Active Substance: DICHLORPHENAMIDE
     Dosage: 50 MG, QD
     Route: 048
     Dates: start: 20210709
  5. KEVEYIS [Suspect]
     Active Substance: DICHLORPHENAMIDE
     Dosage: 12.5 MG, QD
     Route: 048
  6. DIAMOX SEQUELS [Concomitant]
     Active Substance: ACETAZOLAMIDE
     Indication: PRODUCT USED FOR UNKNOWN INDICATION

REACTIONS (23)
  - Gait disturbance [Unknown]
  - Paraesthesia [Unknown]
  - Vertigo [Unknown]
  - Dysarthria [Unknown]
  - Hypotension [Unknown]
  - Conversion disorder [Unknown]
  - Hypotension [Unknown]
  - Vision blurred [Unknown]
  - Lethargy [Unknown]
  - Confusional state [Unknown]
  - Asthenia [Unknown]
  - Medication error [Unknown]
  - Dizziness [Unknown]
  - Dyspnoea [Unknown]
  - Urine abnormality [Unknown]
  - Burning sensation [Unknown]
  - Wrong technique in product usage process [Unknown]
  - Diarrhoea [Unknown]
  - Fatigue [Unknown]
  - Acne [Unknown]
  - Dysphagia [Unknown]
  - Intentional underdose [Unknown]
  - Dry mouth [Unknown]

NARRATIVE: CASE EVENT DATE: 20210727
